FAERS Safety Report 8434154-7 (Version None)
Quarter: 2012Q2

REPORT INFORMATION
  Report Type: 
  Country: None (occurrence: None)
  Receive Date: 20120613
  Receipt Date: 20120605
  Transmission Date: 20120825
  Serious: Yes (Death)
  Sender: FDA-Public Use
  Company Number: US-ACTELION-A-US2012-65833

PATIENT

DRUGS (3)
  1. ASPIRIN [Concomitant]
  2. TRACLEER [Suspect]
     Indication: PULMONARY ARTERIAL HYPERTENSION
     Dosage: UNK
     Route: 048
     Dates: start: 20120404
  3. AZATHIOPRINE [Concomitant]

REACTIONS (1)
  - CEREBROVASCULAR ACCIDENT [None]
